FAERS Safety Report 25977307 (Version 3)
Quarter: 2025Q4

REPORT INFORMATION
  Report Type: Spontaneous
  Country: US (occurrence: US)
  Receive Date: 20251030
  Receipt Date: 20251119
  Transmission Date: 20260118
  Serious: No
  Sender: KARYOPHARM THERAPEUTICS
  Company Number: US-KARYOPHARM-2025KPT100878

PATIENT

DRUGS (11)
  1. SELINEXOR [Suspect]
     Active Substance: SELINEXOR
     Indication: Malignant neoplasm of unknown primary site
     Dosage: 80 MG WEEKLY FOR 3 WEEKS ON THEN 1 WEEK OFF
     Route: 048
     Dates: start: 20251024
  2. ACYCLOVIR [Concomitant]
     Active Substance: ACYCLOVIR
  3. ESTRADIOL [Concomitant]
     Active Substance: ESTRADIOL
  4. ACETAMINOPHEN\HYDROCODONE [Concomitant]
     Active Substance: ACETAMINOPHEN\HYDROCODONE
  5. ONDANSETRON [Concomitant]
     Active Substance: ONDANSETRON
  6. PAXIL [Concomitant]
     Active Substance: PAROXETINE HYDROCHLORIDE
  7. PREDNISONE [Concomitant]
     Active Substance: PREDNISONE
  8. OMEPRAZOLE [Concomitant]
     Active Substance: OMEPRAZOLE
  9. XARELTO [Concomitant]
     Active Substance: RIVAROXABAN
  10. VALIUM [Concomitant]
     Active Substance: DIAZEPAM
  11. PAROXETINE HYDROCHLORIDE [Concomitant]
     Active Substance: PAROXETINE HYDROCHLORIDE

REACTIONS (9)
  - Orthostatic tachycardia [Not Recovered/Not Resolved]
  - Abdominal discomfort [Unknown]
  - Decreased appetite [Not Recovered/Not Resolved]
  - Fatigue [Unknown]
  - Asthenia [Unknown]
  - Diarrhoea [Not Recovered/Not Resolved]
  - Nausea [Unknown]
  - Weight decreased [Unknown]
  - Therapeutic response unexpected [Unknown]

NARRATIVE: CASE EVENT DATE: 20251001
